FAERS Safety Report 9338955 (Version 1)
Quarter: 2013Q2

REPORT INFORMATION
  Report Type: Spontaneous
  Country: FR (occurrence: FR)
  Receive Date: 20130610
  Receipt Date: 20130610
  Transmission Date: 20140414
  Serious: Yes (Hospitalization)
  Sender: FDA-Public Use
  Company Number: FR-PFIZER INC-2013172834

PATIENT
  Age: 62 Year
  Sex: Male

DRUGS (3)
  1. CORDARONE [Suspect]
     Indication: ATRIAL FIBRILLATION
     Dosage: 2 TABLETS OF 200 MG TWICE DAILY
     Route: 048
     Dates: start: 20130218
  2. PREVISCAN [Interacting]
     Indication: ATRIAL FIBRILLATION
     Dosage: UNK
     Route: 048
     Dates: start: 20130218
  3. XARELTO [Interacting]
     Indication: ATRIAL FIBRILLATION
     Dosage: UNK
     Route: 048
     Dates: start: 201302, end: 20130323

REACTIONS (3)
  - Drug interaction [Unknown]
  - Epistaxis [Recovered/Resolved]
  - International normalised ratio increased [Recovered/Resolved]
